FAERS Safety Report 7430987-4 (Version None)
Quarter: 2011Q2

REPORT INFORMATION
  Report Type: 
  Country: None (occurrence: None)
  Receive Date: 20110421
  Receipt Date: 20110414
  Transmission Date: 20111010
  Serious: Yes (Hospitalization, Other)
  Sender: FDA-Public Use
  Company Number: US-BAYER-2011-033015

PATIENT
  Age: 73 Year
  Sex: Female

DRUGS (3)
  1. MAGNEVIST [Suspect]
     Indication: NUCLEAR MAGNETIC RESONANCE IMAGING
     Dosage: 20 ML, ONCE
     Route: 042
     Dates: start: 20110412, end: 20110412
  2. BENADRYL [Concomitant]
     Indication: HYPERSENSITIVITY
  3. BENADRYL [Concomitant]
     Indication: PREMEDICATION
     Dosage: 20 MG, ONCE
     Dates: start: 20110412, end: 20110412

REACTIONS (2)
  - ABASIA [None]
  - PAIN [None]
